FAERS Safety Report 9275202 (Version 1)
Quarter: 2013Q2

REPORT INFORMATION
  Report Type: Spontaneous
  Country: US (occurrence: None)
  Receive Date: 20130501
  Receipt Date: 20130501
  Transmission Date: 20140414
  Serious: Yes (Other)
  Sender: FDA-Public Use
  Company Number: None

PATIENT
  Age: 36 Year
  Sex: Female
  Weight: 72.58 kg

DRUGS (1)
  1. ALPRAZOLAM [Suspect]
     Indication: ESSENTIAL TREMOR
     Route: 048
     Dates: start: 20100323, end: 20110203

REACTIONS (4)
  - Tachycardia [None]
  - Panic attack [None]
  - Fear [None]
  - Initial insomnia [None]
